FAERS Safety Report 9761086 (Version 1)
Quarter: 2013Q4

REPORT INFORMATION
  Report Type: Spontaneous
  Country: RO (occurrence: RO)
  Receive Date: 20131216
  Receipt Date: 20131216
  Transmission Date: 20140711
  Serious: Yes (Other)
  Sender: FDA-Public Use
  Company Number: RO-ACTAVIS-2013-22405

PATIENT
  Age: 50 Year
  Sex: Female

DRUGS (9)
  1. CYCLOPHOSPHAMIDE (UNKNOWN) [Suspect]
     Indication: NON-HODGKIN^S LYMPHOMA STAGE IV
     Dosage: UNK
     Route: 065
     Dates: start: 200907
  2. DOXORUBICIN (UNKNOWN) [Suspect]
     Indication: NON-HODGKIN^S LYMPHOMA STAGE IV
     Dosage: UNK
     Route: 065
     Dates: start: 200907
  3. VINCRISTINE (UNKNOWN) [Suspect]
     Indication: NON-HODGKIN^S LYMPHOMA STAGE IV
     Dosage: UNK
     Route: 065
     Dates: start: 200907
  4. GEMCITABINE (UNKNOWN) [Suspect]
     Indication: NON-HODGKIN^S LYMPHOMA STAGE IV
     Dosage: UNK
     Route: 065
     Dates: start: 201011, end: 201109
  5. PREDNISONE (UNKNOWN) [Suspect]
     Indication: NON-HODGKIN^S LYMPHOMA STAGE IV
     Dosage: UNK
     Route: 065
     Dates: start: 200907
  6. ETOPOSIDE (UNKNOWN) [Suspect]
     Indication: NON-HODGKIN^S LYMPHOMA STAGE IV
     Dosage: UNK
     Route: 065
  7. METHOTREXATE (UNKNOWN) [Suspect]
     Indication: NON-HODGKIN^S LYMPHOMA STAGE IV
     Dosage: UNK
     Route: 065
  8. BLEOMYCIN [Suspect]
     Indication: NON-HODGKIN^S LYMPHOMA STAGE IV
     Dosage: UNK
     Route: 065
  9. INTERFERON [Suspect]
     Indication: NON-HODGKIN^S LYMPHOMA STAGE IV
     Dosage: UNK
     Route: 065
     Dates: start: 200907, end: 201011

REACTIONS (1)
  - Plasma cell myeloma [Not Recovered/Not Resolved]
